FAERS Safety Report 4891616-7 (Version None)
Quarter: 2005Q4

REPORT INFORMATION
  Report Type: 
  Country: None (occurrence: None)
  Receive Date: 20051220
  Receipt Date: 20050919
  Transmission Date: 20060501
  Serious: Yes (Other)
  Sender: FDA-Public Use
  Company Number: 418418

PATIENT
  Age: 55 Year
  Sex: Female

DRUGS (4)
  1. BONIVA [Suspect]
  2. OMEGA-3 (DOCONEXENT/ICOSAPENT) [Concomitant]
  3. ROYAL JELLY (ROYAL JELLY) [Concomitant]
  4. CELEBREX [Concomitant]

REACTIONS (1)
  - ALOPECIA [None]
